FAERS Safety Report 6524519-2 (Version None)
Quarter: 2010Q1

REPORT INFORMATION
  Report Type: 
  Country: None (occurrence: None)
  Receive Date: 20100104
  Receipt Date: 20091222
  Transmission Date: 20100710
  Serious: Yes (Hospitalization, Other)
  Sender: FDA-Public Use
  Company Number: US-ROCHE-674949

PATIENT
  Sex: Male
  Weight: 49.9 kg

DRUGS (2)
  1. ACCUTANE [Suspect]
     Indication: ACNE
     Route: 048
     Dates: start: 20020904
  2. ACCUTANE [Suspect]
     Route: 048
     Dates: start: 20021105, end: 20030101

REACTIONS (4)
  - ABDOMINAL PAIN UPPER [None]
  - CROHN'S DISEASE [None]
  - GASTROINTESTINAL MOTILITY DISORDER [None]
  - INTESTINAL STENOSIS [None]
